FAERS Safety Report 7429741-9 (Version None)
Quarter: 2011Q2

REPORT INFORMATION
  Report Type: 
  Country: None (occurrence: None)
  Receive Date: 20110418
  Receipt Date: 20110418
  Transmission Date: 20111010
  Serious: Yes (Death)
  Sender: FDA-Public Use
  Company Number: None

PATIENT
  Sex: Male
  Weight: 83.9154 kg

DRUGS (1)
  1. PLAVIX [Suspect]
     Dosage: 75MG ONCE A DAY
     Dates: start: 20100910, end: 20100910

REACTIONS (1)
  - CEREBRAL HAEMORRHAGE [None]
